FAERS Safety Report 23896237 (Version 1)
Quarter: 2024Q2

REPORT INFORMATION
  Report Type: Spontaneous
  Country: US (occurrence: US)
  Receive Date: 20240524
  Receipt Date: 20240524
  Transmission Date: 20240715
  Serious: Yes (Other)
  Sender: FDA-Public Use
  Company Number: US-BRISTOL-MYERS SQUIBB COMPANY-2024-079541

PATIENT
  Age: 75 Year
  Sex: Male
  Weight: 83.01 kg

DRUGS (5)
  1. ELIQUIS [Suspect]
     Active Substance: APIXABAN
     Dosage: 5 MG, 2X/DAY
     Route: 048
  2. VYNDAMAX [Suspect]
     Active Substance: TAFAMIDIS
     Dosage: 61 MG, DAILY
     Route: 048
     Dates: start: 20240515
  3. FLECAINIDE [Concomitant]
     Active Substance: FLECAINIDE
  4. LASIX [Concomitant]
     Active Substance: FUROSEMIDE
     Dosage: 40 MG, AS NEEDED
  5. JARDIANCE [Concomitant]
     Active Substance: EMPAGLIFLOZIN
     Dosage: 10 MG

REACTIONS (7)
  - Neuropathy peripheral [Unknown]
  - Acute respiratory failure [Unknown]
  - Abdominal distension [Unknown]
  - Oedema peripheral [Recovered/Resolved]
  - Weight increased [Unknown]
  - Fatigue [Unknown]
  - Orthopnoea [Unknown]
